FAERS Safety Report 16005201 (Version 1)
Quarter: 2019Q1

REPORT INFORMATION
  Report Type: Spontaneous
  Country: US (occurrence: US)
  Receive Date: 20190226
  Receipt Date: 20190226
  Transmission Date: 20190418
  Serious: No
  Sender: FDA-Public Use
  Company Number: US-PFIZER INC-2019080131

PATIENT
  Age: 34 Year
  Sex: Female

DRUGS (1)
  1. GENOTROPIN [Suspect]
     Active Substance: SOMATROPIN
     Dosage: 0.2 MG, DAILY
     Dates: start: 20180225

REACTIONS (3)
  - Blood glucose decreased [Unknown]
  - Blood corticotrophin decreased [Unknown]
  - Insulin-like growth factor increased [Unknown]

NARRATIVE: CASE EVENT DATE: 20180409
